FAERS Safety Report 7989861-7 (Version None)
Quarter: 2011Q4

REPORT INFORMATION
  Report Type: 
  Country: None (occurrence: None)
  Receive Date: 20111219
  Receipt Date: 20101209
  Transmission Date: 20120403
  Serious: No
  Sender: FDA-Public Use
  Company Number: US-ASTRAZENECA-2010SE58865

PATIENT
  Sex: Female

DRUGS (2)
  1. CRESTOR [Suspect]
     Route: 048
     Dates: end: 20090101
  2. CRESTOR [Suspect]
     Route: 048
     Dates: start: 20100101

REACTIONS (5)
  - ALOPECIA [None]
  - PAIN OF SKIN [None]
  - URINE COLOUR ABNORMAL [None]
  - PAIN [None]
  - MUSCLE SPASMS [None]
